FAERS Safety Report 6746733-3 (Version None)
Quarter: 2010Q2

REPORT INFORMATION
  Report Type: 
  Country: None (occurrence: None)
  Receive Date: 20100528
  Receipt Date: 20090811
  Transmission Date: 20101027
  Serious: No
  Sender: FDA-Public Use
  Company Number: A0791575A

PATIENT
  Age: 56 Year
  Sex: Female

DRUGS (8)
  1. VENTOLIN [Suspect]
     Indication: ASTHMA
     Dosage: 2PUFF FOUR TIMES PER DAY
     Route: 055
     Dates: start: 20090401
  2. ADVAIR DISKUS 100/50 [Concomitant]
  3. PREDNISONE TAB [Concomitant]
  4. VITAMIN C [Concomitant]
  5. COQ-10 [Concomitant]
  6. POTASSIUM [Concomitant]
  7. MICROLACTIN [Concomitant]
  8. ALBUTEROL [Concomitant]

REACTIONS (2)
  - DRUG INEFFECTIVE [None]
  - PRODUCT QUALITY ISSUE [None]
